FAERS Safety Report 6217356-X (Version None)
Quarter: 2009Q2

REPORT INFORMATION
  Report Type: 
  Country: None (occurrence: None)
  Receive Date: 20090608
  Receipt Date: 20080826
  Transmission Date: 20091009
  Serious: No
  Sender: FDA-Public Use
  Company Number: A0741581A

PATIENT
  Age: 45 Year
  Sex: Female
  Weight: 77.3 kg

DRUGS (2)
  1. WELLBUTRIN XL [Suspect]
     Indication: DRUG USE FOR UNKNOWN INDICATION
     Dosage: 450MG UNKNOWN
     Route: 048
  2. LAMICTAL [Concomitant]

REACTIONS (1)
  - DYSPNOEA [None]
